FAERS Safety Report 15073575 (Version 1)
Quarter: 2018Q2

REPORT INFORMATION
  Report Type: Spontaneous
  Country: US (occurrence: US)
  Receive Date: 20180606
  Receipt Date: 20180606
  Transmission Date: 20180711
  Serious: Yes (Other)
  Sender: FDA-Public Use
  Company Number: None

PATIENT
  Sex: Female

DRUGS (1)
  1. MAGNESIUM SULFATE IN WATER FOR INJECTION [Suspect]
     Active Substance: MAGNESIUM SULFATE HEPTAHYDRATE
     Indication: PREMATURE LABOUR
     Dosage: ?          OTHER FREQUENCY:CONTINUOUS INFUSIO;?
     Route: 041
     Dates: start: 20180603, end: 20180603

REACTIONS (2)
  - Uterine hypertonus [None]
  - Product quality issue [None]
